FAERS Safety Report 5131521-4 (Version None)
Quarter: 2006Q4

REPORT INFORMATION
  Report Type: 
  Country: None (occurrence: None)
  Receive Date: 20061020
  Receipt Date: 20030805
  Transmission Date: 20070319
  Serious: Yes (Hospitalization)
  Sender: FDA-Public Use
  Company Number: FR-SANOFI-SYNTHELABO-B01200301949

PATIENT
  Sex: Male
  Weight: 72 kg

DRUGS (7)
  1. DURAGESIC-100 [Concomitant]
     Dosage: 50 MCG
     Route: 062
  2. MORPHINE SULFATE [Concomitant]
     Dosage: 10 MG
     Route: 065
  3. SOLU-MEDROL [Concomitant]
     Dosage: 40 MG
     Route: 065
  4. MORPHINE [Concomitant]
     Dosage: 10 MG
     Route: 058
  5. LEUCOVORIN CALCIUM [Suspect]
     Route: 042
     Dates: start: 20030708, end: 20030708
  6. FLUOROURACIL [Suspect]
     Dosage: 400 MG /M2/DAY IV BOLUS THEN 600 MG/M2/DAY IV CONTINUOUS INFUSION Q2W
     Route: 042
     Dates: start: 20030708, end: 20030708
  7. OXALIPLATIN [Suspect]
     Route: 042
     Dates: start: 20030708, end: 20030708

REACTIONS (18)
  - BACTERIAL INFECTION [None]
  - CHEST PAIN [None]
  - CONSTIPATION [None]
  - CULTURE POSITIVE [None]
  - DRUG INTOLERANCE [None]
  - DYSPHAGIA [None]
  - DYSPNOEA [None]
  - FATIGUE [None]
  - GENERAL PHYSICAL HEALTH DETERIORATION [None]
  - MALNUTRITION [None]
  - NAUSEA [None]
  - OESOPHAGITIS [None]
  - PLEURAL EFFUSION [None]
  - PROCEDURAL COMPLICATION [None]
  - PYREXIA [None]
  - RADIATION INJURY [None]
  - RESPIRATORY DISTRESS [None]
  - SKIN EXFOLIATION [None]
